FAERS Safety Report 4642780-6 (Version None)
Quarter: 2005Q2

REPORT INFORMATION
  Report Type: 
  Country: None (occurrence: None)
  Receive Date: 20050420
  Receipt Date: 20050401
  Transmission Date: 20051028
  Serious: Yes (Hospitalization)
  Sender: FDA-Public Use
  Company Number: FR_050406154

PATIENT
  Age: 69 Year
  Sex: Male

DRUGS (3)
  1. CIALIS [Suspect]
     Dates: start: 20041230, end: 20041230
  2. NITROGLYCERIN [Concomitant]
  3. BRICANYL [Concomitant]

REACTIONS (9)
  - CHEST PAIN [None]
  - DRUG INTERACTION [None]
  - DRY MOUTH [None]
  - EPIDERMAL NECROSIS [None]
  - LEUKOCYTOCLASTIC VASCULITIS [None]
  - LIVER DISORDER [None]
  - LYMPHADENOPATHY [None]
  - PALPITATIONS [None]
  - VASCULAR PURPURA [None]
